FAERS Safety Report 25741981 (Version 1)
Quarter: 2025Q3

REPORT INFORMATION
  Report Type: Spontaneous
  Country: US (occurrence: None)
  Receive Date: 20250829
  Receipt Date: 20250829
  Transmission Date: 20251021
  Serious: Yes (Hospitalization, Disabling)
  Sender: FDA-CTU
  Company Number: None

PATIENT
  Age: 72 Year
  Sex: Female
  Weight: 78.47 kg

DRUGS (12)
  1. PROLIA [Suspect]
     Active Substance: DENOSUMAB
     Indication: Osteogenesis imperfecta
     Route: 050
     Dates: start: 20250304
  2. PRAVASTATIN SODIUM [Concomitant]
     Active Substance: PRAVASTATIN SODIUM
  3. Omega [Concomitant]
  4. CARBIDOPA\LEVODOPA [Concomitant]
     Active Substance: CARBIDOPA\LEVODOPA
  5. SERTRALINE [Concomitant]
     Active Substance: SERTRALINE HYDROCHLORIDE
  6. Certizine [Concomitant]
  7. Women Multi [Concomitant]
  8. Vita Fusion Calcium [Concomitant]
  9. Red Yest [Concomitant]
  10. GARLIC OIL [Concomitant]
     Active Substance: GARLIC OIL
  11. DEVICE [Concomitant]
     Active Substance: DEVICE
  12. Prolia (March 4, 2025) Injection [Concomitant]

REACTIONS (10)
  - Tendon rupture [None]
  - Back pain [None]
  - Groin pain [None]
  - Pain in extremity [None]
  - Hypoaesthesia [None]
  - Headache [None]
  - Urinary tract infection [None]
  - Abdominal pain upper [None]
  - Blood cholesterol increased [None]
  - Gingival abscess [None]

NARRATIVE: CASE EVENT DATE: 20250314
